FAERS Safety Report 24729866 (Version 2)
Quarter: 2024Q4

REPORT INFORMATION
  Report Type: Spontaneous
  Country: US (occurrence: US)
  Receive Date: 20241213
  Receipt Date: 20241223
  Transmission Date: 20250114
  Serious: Yes (Other)
  Sender: BIOVITRUM
  Company Number: US-BIOVITRUM-2024-US-015834

PATIENT
  Age: 65 Year
  Sex: Female

DRUGS (2)
  1. VONJO [Suspect]
     Active Substance: PACRITINIB
     Indication: Myelofibrosis
     Dosage: 2 TIMES DAILY
     Route: 048
     Dates: start: 20241115
  2. VONJO [Suspect]
     Active Substance: PACRITINIB
     Dosage: 2 TIMES DAILY
     Route: 048
     Dates: start: 20241115

REACTIONS (2)
  - Haemoglobin decreased [Unknown]
  - Off label use [Not Recovered/Not Resolved]

NARRATIVE: CASE EVENT DATE: 20241115
